FAERS Safety Report 26086839 (Version 1)
Quarter: 2025Q4

REPORT INFORMATION
  Report Type: Spontaneous
  Country: US (occurrence: None)
  Receive Date: 20251124
  Receipt Date: 20251124
  Transmission Date: 20260117
  Serious: Yes (Death)
  Sender: FDA-CTU
  Company Number: None

PATIENT
  Age: 36 Year
  Sex: Male
  Weight: 74.25 kg

DRUGS (2)
  1. MIRTAZAPINE [Suspect]
     Active Substance: MIRTAZAPINE
     Indication: Withdrawal syndrome
     Dosage: 1 TABLET AT BEDTIME ORAL
     Route: 048
     Dates: start: 20240118, end: 20240720
  2. LORAZEPAM [Suspect]
     Active Substance: LORAZEPAM

REACTIONS (14)
  - Drug dependence [None]
  - Product dispensing error [None]
  - Incorrect dose administered [None]
  - Antidepressant discontinuation syndrome [None]
  - Panic attack [None]
  - Chest pain [None]
  - Migraine [None]
  - Head discomfort [None]
  - Abdominal pain [None]
  - Constipation [None]
  - Diarrhoea [None]
  - Histamine intolerance [None]
  - Completed suicide [None]
  - Contraindicated product prescribed [None]

NARRATIVE: CASE EVENT DATE: 20240118
